FAERS Safety Report 7197516-4 (Version None)
Quarter: 2010Q4

REPORT INFORMATION
  Report Type: 
  Country: None (occurrence: None)
  Receive Date: 20101208
  Receipt Date: 20101202
  Transmission Date: 20110411
  Serious: Yes (Other)
  Sender: FDA-Public Use
  Company Number: 2010SP062777

PATIENT

DRUGS (3)
  1. TEMOZOLOMIDE [Suspect]
     Indication: GLIOBLASTOMA MULTIFORME
     Dosage: ;  PO
     Route: 048
  2. TEMSIROLIMUS [Suspect]
     Indication: GLIOBLASTOMA MULTIFORME
     Dosage: 50 MG;QW;IV
     Route: 042
  3. RADIATION THERAPY [Suspect]
     Indication: GLIOBLASTOMA MULTIFORME

REACTIONS (1)
  - HYPERLIPIDAEMIA [None]
